FAERS Safety Report 6346761-6 (Version None)
Quarter: 2009Q3

REPORT INFORMATION
  Report Type: 
  Country: None (occurrence: None)
  Receive Date: 20090904
  Receipt Date: 20090828
  Transmission Date: 20100115
  Serious: Yes (Other)
  Sender: FDA-Public Use
  Company Number: 2009SP021226

PATIENT
  Age: 70 Year
  Sex: Male
  Weight: 70 kg

DRUGS (6)
  1. TEMODAL [Suspect]
     Indication: GLIOBLASTOMA
     Dosage: 270 MG; 1060 MG; 270 MG
     Dates: start: 20090818, end: 20090818
  2. TEMODAL [Suspect]
     Indication: GLIOBLASTOMA
     Dosage: 270 MG; 1060 MG; 270 MG
     Dates: end: 20090819
  3. BELOC ZOK (CON.) [Concomitant]
  4. CEFUROXIM (CON.) [Concomitant]
  5. GLUCOPHAGE (CON.) [Concomitant]
  6. MOVICOL (CON.) [Concomitant]

REACTIONS (3)
  - ACCIDENTAL OVERDOSE [None]
  - HEPATIC ENZYME INCREASED [None]
  - NEPHROLITHIASIS [None]
